FAERS Safety Report 5563163-0 (Version None)
Quarter: 2007Q4

REPORT INFORMATION
  Report Type: 
  Country: None (occurrence: None)
  Receive Date: 20071217
  Receipt Date: 20071207
  Transmission Date: 20080405
  Serious: Yes (Life-Threatening)
  Sender: FDA-Public Use
  Company Number: B0499898A

PATIENT
  Age: 54 Year
  Sex: Female

DRUGS (12)
  1. TAGAMET [Suspect]
     Dosage: 200MG PER DAY
     Route: 048
     Dates: start: 20070717, end: 20070717
  2. DIPRIVAN [Suspect]
     Route: 042
     Dates: start: 20070717, end: 20070717
  3. CELOCURINE [Suspect]
     Dosage: 100MG PER DAY
     Route: 042
     Dates: start: 20070717, end: 20070717
  4. SUFENTANIL CITRATE [Suspect]
     Dosage: 15MCG PER DAY
     Route: 042
     Dates: start: 20070717, end: 20070717
  5. L-THYROXIN [Concomitant]
     Indication: PREMEDICATION
  6. PROPRANOLOL [Concomitant]
     Indication: PREMEDICATION
  7. BISOPROLOL [Concomitant]
  8. HYDROCHLOROTHIAZIDE [Concomitant]
  9. LANSOPRAZOLE [Concomitant]
  10. ESCITALOPRAM [Concomitant]
  11. ATORVASTATIN CALCIUM [Concomitant]
  12. ATARAX [Concomitant]
     Indication: PREMEDICATION

REACTIONS (6)
  - ANAPHYLACTIC SHOCK [None]
  - BLOOD PRESSURE SYSTOLIC DECREASED [None]
  - BRADYCARDIA [None]
  - ERYTHEMA [None]
  - OXYGEN SATURATION DECREASED [None]
  - VENTRICULAR FIBRILLATION [None]
